FAERS Safety Report 17011153 (Version 1)
Quarter: 2019Q4

REPORT INFORMATION
  Report Type: Spontaneous
  Country: US (occurrence: US)
  Receive Date: 20191108
  Receipt Date: 20191108
  Transmission Date: 20200122
  Serious: No
  Sender: FDA-Public Use
  Company Number: US-NOVOPROD-657197

PATIENT
  Age: 47 Year
  Sex: Male

DRUGS (1)
  1. TRESIBA [Suspect]
     Active Substance: INSULIN DEGLUDEC
     Indication: DIABETES MELLITUS
     Dosage: 50 IU, QD
     Route: 058
     Dates: start: 201903

REACTIONS (3)
  - Eye irritation [Unknown]
  - Accidental exposure to product [Unknown]
  - Device breakage [Unknown]

NARRATIVE: CASE EVENT DATE: 20190407
